FAERS Safety Report 13839993 (Version 1)
Quarter: 2017Q3

REPORT INFORMATION
  Report Type: Spontaneous
  Country: GB (occurrence: GB)
  Receive Date: 20170807
  Receipt Date: 20170807
  Transmission Date: 20171127
  Serious: Yes (Life-Threatening, Hospitalization)
  Sender: FDA-Public Use
  Company Number: GB-TEVA-571879ACC

PATIENT
  Age: 58 Year
  Sex: Female
  Weight: 102.8 kg

DRUGS (14)
  1. PREDNISOLONE. [Concomitant]
     Active Substance: PREDNISOLONE
  2. SIMVASTATIN. [Concomitant]
     Active Substance: SIMVASTATIN
  3. SODIUM VALPROATE [Concomitant]
     Active Substance: VALPROATE SODIUM
  4. BUDESONIDE AND FORMOTEROL FUMARATE [Concomitant]
     Active Substance: BUDESONIDE\FORMOTEROL FUMARATE
  5. PARACETAMOL [Concomitant]
     Active Substance: ACETAMINOPHEN
  6. CLOZAPINE. [Suspect]
     Active Substance: CLOZAPINE
     Indication: SCHIZOPHRENIA
     Dosage: 25MG IN THE MORNING AND 200MG AT NIGHT
     Route: 048
     Dates: start: 2010, end: 20150603
  7. CLOPIDOGREL [Concomitant]
     Active Substance: CLOPIDOGREL BISULFATE
  8. OMEPRAZOLE. [Concomitant]
     Active Substance: OMEPRAZOLE
  9. CARBOCISTEINE [Concomitant]
     Active Substance: CARBOCYSTEINE
  10. SERTRALINE [Concomitant]
     Active Substance: SERTRALINE HYDROCHLORIDE
  11. SALBUTAMOL [Concomitant]
     Active Substance: ALBUTEROL
  12. TIOTROPIUM BROMIDE [Concomitant]
     Active Substance: TIOTROPIUM BROMIDE
  13. PHYLLOCONTIN [Concomitant]
     Active Substance: AMINOPHYLLINE
  14. ALLOPURINOL. [Suspect]
     Active Substance: ALLOPURINOL
     Indication: GOUT
     Dosage: 300 MILLIGRAM DAILY;
     Route: 048
     Dates: start: 20150518, end: 20150601

REACTIONS (11)
  - Lip swelling [Unknown]
  - Rash maculo-papular [Unknown]
  - Pancytopenia [Not Recovered/Not Resolved]
  - Neutropenia [Unknown]
  - Wheezing [Unknown]
  - Cough [Unknown]
  - Rales [Unknown]
  - Malaise [Unknown]
  - Erythema [Unknown]
  - Diarrhoea [Unknown]
  - Lethargy [Unknown]

NARRATIVE: CASE EVENT DATE: 20150527
